FAERS Safety Report 12870607 (Version 1)
Quarter: 2016Q4

REPORT INFORMATION
  Report Type: Spontaneous
  Country: US (occurrence: US)
  Receive Date: 20161021
  Receipt Date: 20161021
  Transmission Date: 20170207
  Serious: No
  Sender: FDA-Public Use
  Company Number: US-ELI_LILLY_AND_COMPANY-US201610001679

PATIENT
  Sex: Female

DRUGS (11)
  1. LISINOPRIL. [Concomitant]
     Active Substance: LISINOPRIL
  2. ESTRADIOL. [Concomitant]
     Active Substance: ESTRADIOL
  3. METFORMIN [Concomitant]
     Active Substance: METFORMIN HYDROCHLORIDE
  4. HUMALOG [Concomitant]
     Active Substance: INSULIN LISPRO
  5. GABAPENTIN. [Concomitant]
     Active Substance: GABAPENTIN
  6. ACIDOPHILUS [Concomitant]
     Active Substance: LACTOBACILLUS ACIDOPHILUS
  7. ASCORBIC ACID (VITAMIN C), PLAIN [Concomitant]
  8. TRULICITY [Suspect]
     Active Substance: DULAGLUTIDE
     Indication: TYPE 2 DIABETES MELLITUS
     Dosage: 0.75 MG, WEEKLY (1/W)
     Route: 065
     Dates: start: 20160930
  9. FOLIC ACID. [Concomitant]
     Active Substance: FOLIC ACID
  10. ASPIRIN 81 [Concomitant]
     Active Substance: ASPIRIN
  11. TRAMADOL. [Concomitant]
     Active Substance: TRAMADOL

REACTIONS (4)
  - Constipation [Not Recovered/Not Resolved]
  - Vomiting [Not Recovered/Not Resolved]
  - Gastrointestinal pain [Not Recovered/Not Resolved]
  - Decreased appetite [Not Recovered/Not Resolved]
